FAERS Safety Report 23449678 (Version 1)
Quarter: 2024Q1

REPORT INFORMATION
  Report Type: Other
  Country: CA (occurrence: CA)
  Receive Date: 20240129
  Receipt Date: 20240129
  Transmission Date: 20240410
  Serious: Yes (Other)
  Sender: FDA-Public Use
  Company Number: CA-APOTEX-2024AP001446

PATIENT
  Age: 62 Year

DRUGS (3)
  1. DASATINIB [Suspect]
     Active Substance: DASATINIB
     Indication: Chronic myeloid leukaemia
     Dosage: 50 MILLIGRAM, QD
     Route: 048
  2. DASATINIB [Suspect]
     Active Substance: DASATINIB
     Dosage: 100 MILLIGRAM, QD
     Route: 048
  3. IMATINIB [Suspect]
     Active Substance: IMATINIB
     Indication: Chronic myeloid leukaemia
     Dosage: UNK
     Route: 065

REACTIONS (7)
  - Intermittent claudication [Unknown]
  - Peripheral vascular disorder [Unknown]
  - Asthenia [Unknown]
  - Diabetes mellitus [Unknown]
  - Weight decreased [Unknown]
  - Abdominal pain [Unknown]
  - Drug ineffective [Unknown]
